FAERS Safety Report 4827392-3 (Version None)
Quarter: 2005Q4

REPORT INFORMATION
  Report Type: 
  Country: None (occurrence: None)
  Receive Date: 20051114
  Receipt Date: 20051114
  Transmission Date: 20060501
  Serious: No
  Sender: FDA-Public Use
  Company Number: None

PATIENT

DRUGS (2)
  1. ACETADOTE [Suspect]
     Dosage: INJECTABLE
  2. ACETYLCYSTEINE [Suspect]
     Dosage: SOLUTION

REACTIONS (1)
  - MEDICATION ERROR [None]
